FAERS Safety Report 8315864-9 (Version None)
Quarter: 2012Q2

REPORT INFORMATION
  Report Type: 
  Country: None (occurrence: None)
  Receive Date: 20120427
  Receipt Date: 20120417
  Transmission Date: 20120825
  Serious: Yes (Hospitalization, Other)
  Sender: FDA-Public Use
  Company Number: US-BIOGENIDEC-2006BI004911

PATIENT
  Age: 45 Year
  Sex: Female
  Weight: 76 kg

DRUGS (4)
  1. MULTIPLE MEDICATIONS NOS [Concomitant]
  2. CALCIUM WITH VITAMIN D [Concomitant]
     Indication: ROUTINE HEALTH MAINTENANCE
     Route: 048
  3. AVONEX [Suspect]
     Route: 030
     Dates: start: 20060327
  4. AVONEX [Suspect]
     Indication: MULTIPLE SCLEROSIS
     Route: 030
     Dates: start: 20040101, end: 20040101

REACTIONS (10)
  - WHITE BLOOD CELL COUNT DECREASED [None]
  - ABDOMINAL DISCOMFORT [None]
  - INFLUENZA LIKE ILLNESS [None]
  - POST PROCEDURAL COMPLICATION [None]
  - NEURALGIA [None]
  - MYALGIA [None]
  - BLOOD PRESSURE DECREASED [None]
  - BREAST CANCER METASTATIC [None]
  - RENAL IMPAIRMENT [None]
  - DEPRESSION [None]
